FAERS Safety Report 4850446-2 (Version None)
Quarter: 2005Q4

REPORT INFORMATION
  Report Type: 
  Country: None (occurrence: None)
  Receive Date: 20051123
  Receipt Date: 20050906
  Transmission Date: 20060501
  Serious: No
  Sender: FDA-Public Use
  Company Number: TPA2005A01022

PATIENT
  Age: 59 Year
  Sex: Male
  Weight: 104.3273 kg

DRUGS (16)
  1. ROZEREM [Suspect]
     Indication: INSOMNIA
     Dosage: 8 MG, HS, PER ORAL
     Route: 048
     Dates: start: 20050902, end: 20050903
  2. NEURONTIN [Suspect]
     Indication: RESTLESS LEGS SYNDROME
     Dosage: 400 MG, QHS, PER ORAL
     Route: 048
     Dates: start: 20050801
  3. NARDIL (PHENELZINE) (45 MILLIGRAM) [Concomitant]
  4. VITAMIN C (ASCORBIC ACID) [Concomitant]
  5. VITAMIN B6/B12 COMPLEX (VITAMIN B12 NOS W/VITAMIN B6) [Concomitant]
  6. VITAMIN B1 TAB [Concomitant]
  7. VITAMIN E [Concomitant]
  8. ESTER-C (CALCIUM ASCORBATE) [Concomitant]
  9. CO-Q10 (ALL OTHER THERAPEUTIC PRODUCTS) (200 MILLIGRAM) [Concomitant]
  10. TEYGNOGINOL (ALL OTHER THERAPEUTIC PRODUCTS) [Concomitant]
  11. CONJUGATED LINOLEIC ACID (LINOLEIC ACID) (2000 MILLIGRAM) [Concomitant]
  12. OMEGA 3 FISH OIL(FISH OIL) (400 MILLIGRAM) [Concomitant]
  13. ALPHA LIPOIC ACID (THIOCTIC ACID) [Concomitant]
  14. DMAE (ALL OTHER THERAPEUTIC PRODUCTS) [Concomitant]
  15. CENTRUM MULTIVITAMIN (CENTRUM) [Concomitant]
  16. IRON (IRON) [Concomitant]

REACTIONS (6)
  - DIZZINESS [None]
  - DRUG INEFFECTIVE [None]
  - FATIGUE [None]
  - FEELING HOT [None]
  - NAUSEA [None]
  - TREMOR [None]
